FAERS Safety Report 4362645-7 (Version None)
Quarter: 2004Q2

REPORT INFORMATION
  Report Type: 
  Country: None (occurrence: None)
  Receive Date: 20040524
  Receipt Date: 20040401
  Transmission Date: 20050107
  Serious: Yes (Hospitalization)
  Sender: FDA-Public Use
  Company Number: PHNR2004AU00850

PATIENT
  Age: 29 Year
  Sex: Male

DRUGS (4)
  1. CLOZARIL [Suspect]
     Indication: SCHIZOPHRENIA
     Dosage: 200 MG MANE + 200 MG NOCTE
     Route: 048
     Dates: start: 20020121, end: 20040322
  2. CLOZARIL [Suspect]
     Dosage: 200 MG MANE + 300 MG NOCTE
     Route: 048
     Dates: start: 20040323, end: 20040101
  3. CLOZARIL [Suspect]
     Dosage: 12.5 - 100 MG/DAY
     Dates: start: 20040420
  4. VALPROIC ACID [Concomitant]
     Indication: CONVULSION
     Dosage: 500 MG, BID

REACTIONS (5)
  - DEPRESSED LEVEL OF CONSCIOUSNESS [None]
  - DRUG WITHDRAWAL SYNDROME [None]
  - DYSARTHRIA [None]
  - DYSKINESIA [None]
  - GAIT DISTURBANCE [None]
